FAERS Safety Report 9995727 (Version 1)
Quarter: 2014Q1

REPORT INFORMATION
  Report Type: Spontaneous
  Country: US (occurrence: US)
  Receive Date: 20140311
  Receipt Date: 20140311
  Transmission Date: 20141002
  Serious: Yes (Hospitalization)
  Sender: FDA-Public Use
  Company Number: US-ALLERGAN-1404088US

PATIENT
  Age: 88 Year
  Sex: Female

DRUGS (1)
  1. BOTOX [Suspect]
     Indication: HEADACHE
     Dosage: UNK UNK, SINGLE
     Route: 030
     Dates: start: 201311, end: 201311

REACTIONS (4)
  - Nephrolithiasis [Unknown]
  - Headache [Unknown]
  - Neck pain [Unknown]
  - Muscular weakness [Unknown]
